FAERS Safety Report 8355838-5 (Version None)
Quarter: 2012Q2

REPORT INFORMATION
  Report Type: 
  Country: None (occurrence: None)
  Receive Date: 20120514
  Receipt Date: 20120205
  Transmission Date: 20120825
  Serious: No
  Sender: FDA-Public Use
  Company Number: US-PFIZER INC-2012111897

PATIENT

DRUGS (2)
  1. SODIUM LAURYL SULFATE [Suspect]
     Dosage: UNK
  2. ADVIL LIQUI-GELS [Suspect]
     Dosage: UNK

REACTIONS (3)
  - DRUG HYPERSENSITIVITY [None]
  - ARTHRALGIA [None]
  - SWOLLEN TONGUE [None]
